FAERS Safety Report 23211369 (Version 3)
Quarter: 2024Q1

REPORT INFORMATION
  Report Type: Report from Study
  Country: CN (occurrence: CN)
  Receive Date: 20231121
  Receipt Date: 20240212
  Transmission Date: 20240410
  Serious: Yes (Other)
  Sender: FDA-Public Use
  Company Number: CN-FOSUNKITE-FOSUNKITE-20231323

PATIENT
  Age: 71 Year
  Sex: Male

DRUGS (6)
  1. AXICABTAGENE CILOLEUCEL [Suspect]
     Active Substance: AXICABTAGENE CILOLEUCEL
     Indication: Non-Hodgkin^s lymphoma
     Dosage: 1.5?10^8 CELLS (NUMBER OF CAR-T CELLS)
     Route: 042
     Dates: start: 20230925, end: 20230925
  2. FLUDARABINE PHOSPHATE [Suspect]
     Active Substance: FLUDARABINE PHOSPHATE
     Indication: Lymphodepletion
     Dosage: 50 MG
     Route: 041
     Dates: start: 20230920, end: 20230922
  3. CYCLOPHOSPHAMIDE [Suspect]
     Active Substance: CYCLOPHOSPHAMIDE
     Indication: Lymphodepletion
     Dosage: 935 MG
     Route: 041
     Dates: start: 20230920, end: 20230922
  4. MABTHERA [Concomitant]
     Active Substance: RITUXIMAB
     Dosage: 700 MG
     Route: 042
     Dates: start: 20230807
  5. POLIVY [Concomitant]
     Active Substance: POLATUZUMAB VEDOTIN-PIIQ
     Dosage: UNK
     Dates: start: 20230808
  6. OXALIPLATIN [Concomitant]
     Active Substance: OXALIPLATIN

REACTIONS (32)
  - Systemic inflammatory response syndrome [Not Recovered/Not Resolved]
  - Hypokalaemia [Recovered/Resolved]
  - Atrial fibrillation [Not Recovered/Not Resolved]
  - Atrial fibrillation [Recovered/Resolved]
  - Hypoxia [Recovered/Resolved]
  - Cytokine release syndrome [Recovered/Resolved]
  - White blood cell count decreased [Recovered/Resolved]
  - Neutrophil count decreased [Not Recovered/Not Resolved]
  - Lymphocyte count decreased [Not Recovered/Not Resolved]
  - Anaemia [Not Recovered/Not Resolved]
  - Platelet count decreased [Not Recovered/Not Resolved]
  - Gamma-glutamyltransferase increased [Recovered/Resolved]
  - Hypocalcaemia [Recovered/Resolved]
  - Hypophosphataemia [Recovered/Resolved]
  - Hypomagnesaemia [Not Recovered/Not Resolved]
  - Hypoalbuminaemia [Recovered/Resolved]
  - C-reactive protein increased [Recovered/Resolved]
  - Serum ferritin increased [Not Recovered/Not Resolved]
  - Cytokine increased [Not Recovered/Not Resolved]
  - N-terminal prohormone brain natriuretic peptide increased [Recovered/Resolved]
  - Blood immunoglobulin G decreased [Not Recovered/Not Resolved]
  - Skin lesion [Not Recovered/Not Resolved]
  - Chest discomfort [Recovered/Resolved]
  - Asthenia [Recovered/Resolved]
  - Skin lesion [Recovered/Resolved]
  - Skin lesion [Recovered/Resolved]
  - Skin lesion [Recovered/Resolved]
  - Ecchymosis [Not Recovered/Not Resolved]
  - Petechiae [Not Recovered/Not Resolved]
  - Skin lesion [Not Recovered/Not Resolved]
  - Malnutrition [Not Recovered/Not Resolved]
  - Hypofibrinogenaemia [Not Recovered/Not Resolved]

NARRATIVE: CASE EVENT DATE: 20230925
